FAERS Safety Report 8085619-1 (Version None)
Quarter: 2012Q1

REPORT INFORMATION
  Report Type: 
  Country: None (occurrence: None)
  Receive Date: 20120128
  Receipt Date: 20110401
  Transmission Date: 20120608
  Serious: No
  Sender: FDA-Public Use
  Company Number: US-ABBOTT-11P-163-0715849-00

PATIENT
  Sex: Female
  Weight: 106.69 kg

DRUGS (9)
  1. METFFORMIN HYDROCHLORIDE [Concomitant]
     Dates: end: 20110330
  2. FUROSEMIDE [Concomitant]
     Indication: CARDIAC FAILURE CONGESTIVE
  3. SOMA [Concomitant]
     Indication: PRODUCT USED FOR UNKNOWN INDICATION
  4. METFFORMIN HYDROCHLORIDE [Concomitant]
     Indication: PRODUCT USED FOR UNKNOWN INDICATION
     Dates: start: 20110330
  5. HUMIRA [Suspect]
     Indication: AUTOIMMUNE DISORDER
     Dates: start: 20110305
  6. TRAMADOL HCL [Concomitant]
     Indication: PRODUCT USED FOR UNKNOWN INDICATION
  7. TOPROL-XL [Concomitant]
     Indication: PRODUCT USED FOR UNKNOWN INDICATION
  8. SULFASALAZINE [Concomitant]
     Indication: INFLAMMATION
  9. CYMBALTA [Concomitant]
     Indication: PRODUCT USED FOR UNKNOWN INDICATION

REACTIONS (8)
  - HAEMOPTYSIS [None]
  - BRONCHITIS [None]
  - HEADACHE [None]
  - INCISION SITE COMPLICATION [None]
  - COUGH [None]
  - SQUAMOUS CELL CARCINOMA [None]
  - BONE PAIN [None]
  - BLOOD GLUCOSE INCREASED [None]
